FAERS Safety Report 10562634 (Version 7)
Quarter: 2015Q2

REPORT INFORMATION
  Report Type: Report from Study
  Country: AU (occurrence: AU)
  Receive Date: 20141104
  Receipt Date: 20150529
  Transmission Date: 20150821
  Serious: Yes (Hospitalization, Disabling)
  Sender: FDA-Public Use
  Company Number: AU-MERCK-1410AUS013619

PATIENT
  Age: 69 Year
  Sex: Female

DRUGS (6)
  1. PRE TRIAL THERAPY [Suspect]
     Active Substance: UNSPECIFIED INGREDIENT
     Indication: GLIOMA
  2. RANITIDINE [Concomitant]
     Active Substance: RANITIDINE\RANITIDINE HYDROCHLORIDE
     Indication: PROPHYLAXIS
     Dosage: 300 MG DAILY
     Route: 048
     Dates: start: 20140905
  3. DEXAMETHASONE. [Suspect]
     Active Substance: DEXAMETHASONE
     Dosage: 0.5 MG, QD
     Route: 048
     Dates: start: 20141019
  4. DEXAMETHASONE. [Suspect]
     Active Substance: DEXAMETHASONE
     Indication: BRAIN OEDEMA
     Dosage: 1 MG, UNK
     Route: 048
  5. MAXOLON [Concomitant]
     Active Substance: METOCLOPRAMIDE HYDROCHLORIDE
     Indication: NAUSEA
     Dosage: 10 MG, PRN
     Route: 048
     Dates: start: 20140710
  6. DEXAMETHASONE. [Suspect]
     Active Substance: DEXAMETHASONE
     Dosage: 2-4 MG QID
     Route: 048
     Dates: start: 20141023

REACTIONS (1)
  - Brain oedema [Recovered/Resolved with Sequelae]

NARRATIVE: CASE EVENT DATE: 20141116
